FAERS Safety Report 9026192 (Version 2)
Quarter: 2013Q3

REPORT INFORMATION
  Report Type: Spontaneous
  Country: DE (occurrence: DE)
  Receive Date: 20130123
  Receipt Date: 20130930
  Transmission Date: 20140515
  Serious: Yes (Life-Threatening, Hospitalization)
  Sender: FDA-Public Use
  Company Number: DE-009507513-1301DEU001321

PATIENT
  Age: 81 Year
  Sex: Male
  Weight: 94 kg

DRUGS (3)
  1. BRIDION [Suspect]
     Indication: NEUROMUSCULAR BLOCKADE REVERSAL
     Dosage: UNK
     Route: 042
     Dates: start: 20121218, end: 20121218
  2. ATENOLOL [Concomitant]
     Indication: HYPERTENSION
     Route: 048
  3. VALSARTAN [Concomitant]
     Indication: HYPERTENSION
     Dosage: UNK
     Route: 048
     Dates: start: 201211

REACTIONS (7)
  - Swollen tongue [Recovered/Resolved]
  - Hypoxia [Recovered/Resolved]
  - Speech disorder [Recovered/Resolved]
  - Obstructive airways disorder [Recovered/Resolved]
  - Pharyngeal oedema [Recovered/Resolved]
  - Epiglottic oedema [Recovered/Resolved]
  - Angioedema [Recovered/Resolved]
